FAERS Safety Report 7524680-7 (Version None)
Quarter: 2011Q2

REPORT INFORMATION
  Report Type: 
  Country: None (occurrence: None)
  Receive Date: 20110525
  Receipt Date: 20110509
  Transmission Date: 20111010
  Serious: Yes (Death, Hospitalization)
  Sender: FDA-Public Use
  Company Number: 1000018857

PATIENT
  Age: 43 Year
  Sex: Female

DRUGS (13)
  1. PROPAFENONE HYDROCHLORIDE [Suspect]
     Dosage: 450 MG (150 MG, 3 IN 1 D); ONCE
     Dates: start: 20100301
  2. PROPAFENONE HYDROCHLORIDE [Suspect]
     Dosage: 450 MG (150 MG, 3 IN 1 D); ONCE
     Dates: start: 20110113
  3. BLINDED THERAPY (APIXABAN AND MATCHING WARFARIN SODIUM PLACEBO OR MATC [Suspect]
     Indication: THROMBOSIS PROPHYLAXIS
     Dosage: ORAL
     Route: 048
     Dates: start: 20110114
  4. BLINDED THERAPY (APIXABAN AND MATCHING WARFARIN SODIUM PLACEBO OR MATC [Suspect]
     Indication: THROMBOSIS PROPHYLAXIS
     Dosage: ORAL
     Route: 048
     Dates: start: 20090904, end: 20110113
  5. ATIVAN [Suspect]
     Dosage: 1 MG, AS REQUIRED); ONCE
     Dates: start: 20110113
  6. METFORMIN HYDROCHLORIDE (METFORMIN HYROCHLORIDE) (METFORMIN HYDROCHLOR [Concomitant]
  7. CLONAZEPAM [Suspect]
     Dosage: 1.5 MG (0.5 MG, 3 IN 1 D); ONCE
     Dates: start: 20110113
  8. GLICIAZIDE (GLICIAZIDE) (GLICALZIDE) [Concomitant]
  9. EFFEXPOR VENLAXFAXINE HYDROCHLORIDE) (VENLAFAXINE HYDROCHLORIDE) [Concomitant]
  10. VITAMIN D (VITAMIN D NOS) (VITAMN D NOS) [Concomitant]
  11. ESCITALOPRAM [Suspect]
     Indication: DEPRESSION
     Dosage: ORAL; 30 MG, ORAL; ONCE, ORAL
     Route: 048
     Dates: start: 20110111
  12. ESCITALOPRAM [Suspect]
     Indication: DEPRESSION
     Dosage: ORAL; 30 MG, ORAL; ONCE, ORAL
     Route: 048
     Dates: start: 20110113
  13. METOPROLOL TARTRATE [Suspect]
     Dosage: 100 MG (50 MG, 2 IN 1 D); ONCE
     Dates: start: 20110113

REACTIONS (12)
  - CONDITION AGGRAVATED [None]
  - HYPOTENSION [None]
  - RESTLESSNESS [None]
  - ADJUSTMENT DISORDER [None]
  - DEPRESSED LEVEL OF CONSCIOUSNESS [None]
  - SUICIDE ATTEMPT [None]
  - CARDIAC ARREST [None]
  - PSYCHIATRIC SYMPTOM [None]
  - DECREASED APPETITE [None]
  - HYPOXIA [None]
  - MULTIPLE DRUG OVERDOSE INTENTIONAL [None]
  - STRESS [None]
